FAERS Safety Report 18729878 (Version 1)
Quarter: 2021Q1

REPORT INFORMATION
  Report Type: Spontaneous
  Country: US (occurrence: US)
  Receive Date: 20210112
  Receipt Date: 20210112
  Transmission Date: 20210419
  Serious: No
  Sender: FDA-Public Use
  Company Number: None

PATIENT
  Age: 67 Year
  Sex: Female
  Weight: 67.6 kg

DRUGS (2)
  1. DAPTOMYCIN. [Suspect]
     Active Substance: DAPTOMYCIN
     Indication: BACTERAEMIA
     Route: 040
     Dates: start: 20201228, end: 20210105
  2. VANCOMYCIN [Suspect]
     Active Substance: VANCOMYCIN
     Dates: start: 20201213, end: 20201229

REACTIONS (3)
  - Blood creatine phosphokinase increased [None]
  - Myalgia [None]
  - Rash [None]

NARRATIVE: CASE EVENT DATE: 20210105
